FAERS Safety Report 6627901-8 (Version None)
Quarter: 2010Q1

REPORT INFORMATION
  Report Type: 
  Country: None (occurrence: None)
  Receive Date: 20100311
  Receipt Date: 20090303
  Transmission Date: 20100710
  Serious: No
  Sender: FDA-Public Use
  Company Number: A0771976A

PATIENT
  Sex: Female

DRUGS (2)
  1. NICORETTE [Suspect]
     Indication: DRUG USE FOR UNKNOWN INDICATION
  2. NICORETTE [Suspect]
     Indication: DRUG USE FOR UNKNOWN INDICATION

REACTIONS (7)
  - ABDOMINAL DISCOMFORT [None]
  - ANXIETY [None]
  - GINGIVAL RECESSION [None]
  - HYPERTENSION [None]
  - INTENTIONAL DRUG MISUSE [None]
  - STOMATITIS [None]
  - TINNITUS [None]
